FAERS Safety Report 8087815-6 (Version None)
Quarter: 2012Q1

REPORT INFORMATION
  Report Type: 
  Country: None (occurrence: None)
  Receive Date: 20120128
  Receipt Date: 20110502
  Transmission Date: 20120608
  Serious: No
  Sender: FDA-Public Use
  Company Number: US-ABBOTT-11P-163-0723030-00

PATIENT
  Sex: Female

DRUGS (4)
  1. LANSOPRAZOLE [Concomitant]
     Indication: GASTRIC DISORDER
  2. ETODOLAC [Concomitant]
     Indication: ANTIINFLAMMATORY THERAPY
     Route: 048
  3. ENBREL [Suspect]
     Indication: PSORIATIC ARTHROPATHY
     Dates: start: 20110201
  4. HUMIRA [Suspect]
     Indication: PSORIATIC ARTHROPATHY
     Dates: start: 20101101, end: 20110131

REACTIONS (6)
  - LYMPHADENECTOMY [None]
  - JOINT STIFFNESS [None]
  - CONDITION AGGRAVATED [None]
  - SWELLING [None]
  - MUSCULOSKELETAL PAIN [None]
  - PAIN [None]
